FAERS Safety Report 5291394-6 (Version None)
Quarter: 2007Q2

REPORT INFORMATION
  Report Type: 
  Country: None (occurrence: None)
  Receive Date: 20070402
  Receipt Date: 20070320
  Transmission Date: 20071010
  Serious: Yes (Death)
  Sender: FDA-Public Use
  Company Number: 20073648

PATIENT
  Age: 17 Year
  Sex: Male

DRUGS (1)
  1. LIORESAL [Suspect]
     Indication: MUSCLE SPASTICITY
     Dosage: MCG/DAY, INTRATHECAL
     Route: 037

REACTIONS (3)
  - CONVULSION [None]
  - EPILEPSY [None]
  - POST PROCEDURAL COMPLICATION [None]
